FAERS Safety Report 10571659 (Version 2)
Quarter: 2016Q4

REPORT INFORMATION
  Report Type: Spontaneous
  Country: US (occurrence: US)
  Receive Date: 20141107
  Receipt Date: 20161208
  Transmission Date: 20170206
  Serious: Yes (Hospitalization)
  Sender: FDA-Public Use
  Company Number: US-BAYER-2014-163155

PATIENT
  Age: 23 Year
  Sex: Female

DRUGS (2)
  1. MIRENA [Suspect]
     Active Substance: LEVONORGESTREL
     Indication: CONTRACEPTION
     Dosage: 20 MCG/24HR, CONT
     Route: 015
     Dates: start: 20120409, end: 20121010
  2. MIRENA [Suspect]
     Active Substance: LEVONORGESTREL

REACTIONS (4)
  - Pain [Unknown]
  - Device issue [None]
  - Injury [Unknown]
  - Uterine perforation [Unknown]

NARRATIVE: CASE EVENT DATE: 201208
